FAERS Safety Report 6082677-0 (Version None)
Quarter: 2009Q1

REPORT INFORMATION
  Report Type: 
  Country: None (occurrence: None)
  Receive Date: 20090218
  Receipt Date: 20090209
  Transmission Date: 20090719
  Serious: Yes (Hospitalization, Other)
  Sender: FDA-Public Use
  Company Number: PHHY2008JP31277

PATIENT
  Sex: Female
  Weight: 55 kg

DRUGS (16)
  1. DIOVAN [Suspect]
     Indication: HYPERTENSION
     Dosage: 80 MG, QD
     Route: 048
     Dates: start: 20070817
  2. NORVASC [Concomitant]
     Indication: HYPERTENSION
     Dosage: 5 MG, UNK
     Route: 048
     Dates: start: 20060124
  3. NORVASC [Concomitant]
     Dosage: 2.5 MG, UNK
     Route: 048
     Dates: end: 20070816
  4. MEFRUSIDE [Concomitant]
     Indication: HYPERTENSION
     Dosage: 25 MG, UNK
     Route: 048
     Dates: start: 20070806
  5. MEFRUSIDE [Concomitant]
     Dosage: 12.5 MG, UNK
     Route: 048
  6. MEFRUSIDE [Concomitant]
     Dosage: 25 MG, UNK
     Route: 048
  7. CALBLOCK [Concomitant]
     Indication: HYPERTENSION
     Dosage: 8 MG, UNK
     Route: 048
     Dates: start: 20070926
  8. CALBLOCK [Concomitant]
     Dosage: 16 MG, UNK
     Route: 048
  9. ARTIST [Concomitant]
     Indication: HYPERTENSION
     Dosage: 5 MG, UNK
     Route: 048
     Dates: start: 20060610, end: 20070731
  10. MEXITIL [Concomitant]
     Indication: VENTRICULAR EXTRASYSTOLES
     Dosage: 300 MG, UNK
     Route: 048
     Dates: start: 20070801
  11. MEXITIL [Concomitant]
     Dosage: 200 MG, UNK
  12. MEXITIL [Concomitant]
     Dosage: 300 MG, UNK
     Route: 048
  13. MEXITIL [Concomitant]
     Dosage: 200 MG, UNK
     Route: 048
  14. MEXITIL [Concomitant]
     Dosage: 300 MG, UNK
     Route: 048
     Dates: end: 20080618
  15. LOPRESOR [Concomitant]
     Indication: VENTRICULAR EXTRASYSTOLES
     Dosage: 40 MG, UNK
     Route: 048
     Dates: start: 20070813, end: 20071106
  16. ALMYLAR [Concomitant]
     Indication: VENTRICULAR EXTRASYSTOLES
     Dosage: 25 MG, UNK
     Route: 048
     Dates: start: 20071107, end: 20080121

REACTIONS (4)
  - BLOOD PRESSURE DIASTOLIC DECREASED [None]
  - CARDIAC ABLATION [None]
  - PALPITATIONS [None]
  - VENTRICULAR EXTRASYSTOLES [None]
